FAERS Safety Report 8623759 (Version 3)
Quarter: 2012Q4

REPORT INFORMATION
  Report Type: 
  Country: US (occurrence: US)
  Receive Date: 20120620
  Receipt Date: 20121001
  Transmission Date: 20130627
  Serious: Yes (Other)
  Sender: FDA-Public Use
  Company Number: US-PFIZER INC-2012144357

PATIENT
  Age: 59 Year
  Sex: Female
  Weight: 68.03 kg

DRUGS (18)
  1. LYRICA [Suspect]
     Indication: FIBROMYALGIA
     Dosage: 25 mg, 2x/day
     Route: 048
     Dates: start: 201110
  2. LYRICA [Suspect]
     Indication: MIGRAINE
     Dosage: 50 mg, 2x/day
     Route: 048
     Dates: start: 201204
  3. LYRICA [Suspect]
     Dosage: 25 mg, 2x/day
     Dates: start: 201110, end: 201204
  4. LYRICA [Suspect]
     Dosage: 50 mg, 2x/day
     Dates: start: 201204, end: 201204
  5. NOVOLOG [Concomitant]
     Indication: DIABETES MELLITUS
     Dosage: 60 IU, 3x/day
  6. DIGOXIN [Concomitant]
     Indication: CARDIOVASCULAR DISORDER
     Dosage: UNK
  7. BUMEX [Concomitant]
     Indication: CARDIOVASCULAR DISORDER
     Dosage: UNK
  8. ALBUTEROL [Concomitant]
     Indication: ASTHMA
     Dosage: UNK
  9. DEXILANT [Concomitant]
     Indication: GASTROOESOPHAGEAL REFLUX DISEASE
     Dosage: UNK
  10. CYMBALTA [Concomitant]
     Indication: ANXIETY
     Dosage: UNK
  11. CYMBALTA [Concomitant]
     Indication: DEPRESSION
  12. PAXIL [Concomitant]
     Indication: ANXIETY
     Dosage: UNK
  13. PAXIL [Concomitant]
     Indication: DEPRESSION
  14. CLONAZEPAM [Concomitant]
     Indication: EPILEPSY
     Dosage: UNK
  15. CRESTOR [Concomitant]
     Dosage: UNK
  16. INSULIN [Concomitant]
     Dosage: UNK
  17. SPIRONOLACTONE [Concomitant]
     Dosage: UNK
  18. CARBATROL [Concomitant]
     Dosage: UNK

REACTIONS (11)
  - Suicide attempt [Recovered/Resolved]
  - Suicidal ideation [Recovered/Resolved]
  - Dyspnoea [Recovered/Resolved]
  - Palpitations [Recovered/Resolved]
  - Oedema peripheral [Recovered/Resolved]
  - Vision blurred [Recovered/Resolved]
  - Dry mouth [Recovered/Resolved]
  - Dizziness [Recovered/Resolved]
  - Anxiety [Recovered/Resolved]
  - Depression [Recovered/Resolved]
  - Fibromyalgia [Unknown]
